FAERS Safety Report 23343815 (Version 3)
Quarter: 2024Q1

REPORT INFORMATION
  Report Type: Spontaneous
  Country: GB (occurrence: GB)
  Receive Date: 20231227
  Receipt Date: 20240122
  Transmission Date: 20240409
  Serious: Yes (Hospitalization, Other)
  Sender: FDA-Public Use
  Company Number: GB-MYLANLABS-2023M1136693

PATIENT
  Sex: Female

DRUGS (1)
  1. CLOZARIL [Suspect]
     Active Substance: CLOZAPINE
     Indication: Schizophrenia
     Dosage: UNK
     Route: 048
     Dates: start: 20010701

REACTIONS (5)
  - Dyspnoea [Recovered/Resolved]
  - Hypoglycaemia [Recovered/Resolved]
  - Malaise [Recovered/Resolved]
  - COVID-19 [Recovered/Resolved]
  - Thrombocytosis [Unknown]

NARRATIVE: CASE EVENT DATE: 20240118
